FAERS Safety Report 19763945 (Version 1)
Quarter: 2021Q3

REPORT INFORMATION
  Report Type: Spontaneous
  Country: US (occurrence: US)
  Receive Date: 20210830
  Receipt Date: 20210830
  Transmission Date: 20211014
  Serious: Yes (Other)
  Sender: FDA-Public Use
  Company Number: NVSC2021US189851

PATIENT
  Sex: Male

DRUGS (1)
  1. KESIMPTA [Suspect]
     Active Substance: OFATUMUMAB
     Indication: RELAPSING MULTIPLE SCLEROSIS
     Dosage: (BENEATH THE SKIN, VIA INJECTION) QMO
     Route: 058
     Dates: start: 20210607

REACTIONS (8)
  - Gait disturbance [Unknown]
  - Altered visual depth perception [Unknown]
  - Choking [Unknown]
  - Dysphagia [Unknown]
  - Hypoaesthesia [Unknown]
  - Drug ineffective [Unknown]
  - Memory impairment [Unknown]
  - Balance disorder [Unknown]
